FAERS Safety Report 13232313 (Version 1)
Quarter: 2017Q1

REPORT INFORMATION
  Report Type: Report from Study
  Country: US (occurrence: US)
  Receive Date: 20170214
  Receipt Date: 20170214
  Transmission Date: 20170428
  Serious: Yes (Death, Hospitalization)
  Sender: FDA-Public Use
  Company Number: US-MYLANLABS-2017M1005118

PATIENT

DRUGS (1)
  1. CLOZAPINE. [Suspect]
     Active Substance: CLOZAPINE
     Indication: PRODUCT USED FOR UNKNOWN INDICATION
     Dosage: UNK

REACTIONS (6)
  - Aspiration [Fatal]
  - Cardiac failure [Fatal]
  - Pleural effusion [Fatal]
  - Acute respiratory failure [Fatal]
  - Aortic valve incompetence [Fatal]
  - Pneumonia [Fatal]
